FAERS Safety Report 5649443-9 (Version None)
Quarter: 2008Q1

REPORT INFORMATION
  Report Type: 
  Country: None (occurrence: None)
  Receive Date: 20080304
  Receipt Date: 20080220
  Transmission Date: 20080703
  Serious: Yes (Hospitalization)
  Sender: FDA-Public Use
  Company Number: HU-BAYER-200710709GDS

PATIENT
  Age: 78 Year
  Sex: Male
  Weight: 72 kg

DRUGS (14)
  1. PLACEBO TO SORAFENIB [Suspect]
     Indication: NON-SMALL CELL LUNG CANCER
     Dosage: TOTAL DAILY DOSE: 400 MG
     Route: 048
     Dates: start: 20070220
  2. PLACEBO TO SORAFENIB [Suspect]
     Dosage: TOTAL DAILY DOSE: 400 MG
     Route: 048
     Dates: start: 20070123
  3. PACLITAXEL [Suspect]
     Indication: NON-SMALL CELL LUNG CANCER
     Route: 042
     Dates: start: 20070219, end: 20070219
  4. PACLITAXEL [Suspect]
     Route: 042
     Dates: start: 20070122, end: 20070122
  5. CARBOPLATIN [Suspect]
     Indication: NON-SMALL CELL LUNG CANCER
     Route: 042
     Dates: start: 20070122, end: 20070122
  6. CARBOPLATIN [Suspect]
     Route: 042
     Dates: start: 20070219, end: 20070219
  7. BETALOC [Concomitant]
     Indication: HYPERTENSION
     Route: 048
     Dates: start: 20040101
  8. QUAMATEL [Concomitant]
     Indication: PROPHYLAXIS AGAINST GASTROINTESTINAL ULCER
     Route: 048
     Dates: start: 20070129
  9. QUAMATEL [Concomitant]
     Route: 048
     Dates: start: 20070219
  10. POTASSIUM CHLORIDE [Concomitant]
     Indication: HYPOKALAEMIA
     Route: 048
     Dates: start: 20070129
  11. DIACHESON/PREDNISOLONE [Concomitant]
     Indication: LEUKOPENIA
     Route: 042
     Dates: start: 20070129, end: 20070202
  12. MEDCOL [Concomitant]
     Indication: LEUKOPENIA
     Route: 065
     Dates: start: 20070203
  13. RED BLOOD CELLS [Concomitant]
     Indication: ANAEMIA
     Route: 042
  14. ENALAPRIL MALEATE [Concomitant]
     Indication: HYPERTENSION
     Route: 065
     Dates: start: 20070205

REACTIONS (1)
  - PANCYTOPENIA [None]
